FAERS Safety Report 5988627-7 (Version None)
Quarter: 2008Q4

REPORT INFORMATION
  Report Type: 
  Country: None (occurrence: None)
  Receive Date: 20081208
  Receipt Date: 20081208
  Transmission Date: 20090506
  Serious: Yes (Other)
  Sender: FDA-Public Use
  Company Number: None

PATIENT
  Age: 67 Year
  Sex: Male
  Weight: 74.8435 kg

DRUGS (2)
  1. PROVENTIL HFA ASTHMA INHALER [Suspect]
     Dosage: 1 TO 2 PUFFS AS NEEDED 3 TIMES/WEEK INHAL
     Route: 055
     Dates: start: 20071008, end: 20071105
  2. VENTOLIN [Suspect]
     Dates: start: 20080825, end: 20081001

REACTIONS (7)
  - ASTHMA [None]
  - CONDITION AGGRAVATED [None]
  - DIZZINESS [None]
  - DRUG INEFFECTIVE [None]
  - FEAR [None]
  - MOOD ALTERED [None]
  - PRODUCT QUALITY ISSUE [None]
